FAERS Safety Report 26215420 (Version 1)
Quarter: 2025Q4

REPORT INFORMATION
  Report Type: Spontaneous
  Country: US (occurrence: US)
  Receive Date: 20251231
  Receipt Date: 20251231
  Transmission Date: 20260117
  Serious: Yes (Other)
  Sender: CITIUS PHARMACEUTICALS
  Company Number: US-EISAI INC.-2025CTS000037

PATIENT

DRUGS (4)
  1. LYMPHIR [Suspect]
     Active Substance: DENILEUKIN DIFTITOX-CXDL
     Indication: Product used for unknown indication
     Dosage: 9 MICROGRAM PER KILOGRAM
     Route: 041
  2. ACETAMINOPHEN [Concomitant]
     Active Substance: ACETAMINOPHEN
     Indication: Product used for unknown indication
  3. DIPHENHYDRAMINE HYDROCHLORIDE [Concomitant]
     Active Substance: DIPHENHYDRAMINE HYDROCHLORIDE
     Indication: Product used for unknown indication
     Dosage: 50 MILLIGRAM PER MILLILITRE
  4. SODIUM CHLORIDE [Concomitant]
     Active Substance: SODIUM CHLORIDE
     Indication: Product used for unknown indication
     Dosage: 0.9 PERCENT

REACTIONS (2)
  - Hypoxia [Unknown]
  - Oxygen saturation decreased [Recovered/Resolved]
